FAERS Safety Report 14776541 (Version 1)
Quarter: 2018Q2

REPORT INFORMATION
  Report Type: Spontaneous
  Country: DE (occurrence: DE)
  Receive Date: 20180418
  Receipt Date: 20180418
  Transmission Date: 20180711
  Serious: Yes (Other)
  Sender: FDA-Public Use
  Company Number: PHHY2018DE066549

PATIENT
  Sex: Male
  Weight: 78 kg

DRUGS (3)
  1. ERGENYL CHRONO [Suspect]
     Active Substance: VALPROIC ACID
     Indication: EPILEPSY
     Dosage: UNK
     Route: 065
     Dates: start: 1998, end: 2016
  2. ASPIRIN. [Suspect]
     Active Substance: ASPIRIN
     Indication: CEREBELLAR INFARCTION
     Dosage: 100 MG, UNK
     Route: 065
     Dates: start: 2009
  3. VALSARTAN RATIOPHARM [Concomitant]
     Indication: PRODUCT USED FOR UNKNOWN INDICATION
     Dosage: 80 MG, UNK
     Route: 065
     Dates: start: 2015

REACTIONS (2)
  - Polyneuropathy [Unknown]
  - Tremor [Unknown]
